FAERS Safety Report 8128181-7 (Version None)
Quarter: 2011Q4

REPORT INFORMATION
  Report Type: 
  Country: None (occurrence: None)
  Receive Date: 20111228
  Receipt Date: 20110509
  Transmission Date: 20120403
  Serious: Yes (Life-Threatening)
  Sender: FDA-Public Use
  Company Number: WAES 1105USA01556

PATIENT
  Age: 77 Year
  Sex: Male
  Weight: 58.9676 kg

DRUGS (3)
  1. AVODART [Concomitant]
  2. FLOMAX [Concomitant]
  3. ZETIA [Suspect]
     Indication: LIPIDS INCREASED
     Dosage: 10 MG/DAILY/PO
     Route: 048
     Dates: start: 20110425, end: 20110501

REACTIONS (1)
  - MYALGIA [None]
